FAERS Safety Report 4639353-8 (Version None)
Quarter: 2005Q2

REPORT INFORMATION
  Report Type: 
  Country: None (occurrence: None)
  Receive Date: 20050418
  Receipt Date: 20050406
  Transmission Date: 20051028
  Serious: Yes (Hospitalization)
  Sender: FDA-Public Use
  Company Number: 2005-BP-05971BP

PATIENT
  Age: 58 Year
  Sex: Female

DRUGS (9)
  1. MOBIC [Suspect]
     Indication: OSTEOARTHRITIS
     Dosage: 15 MG (1 IN 1 DAY), PO
     Route: 048
  2. SCIO-469 BLINDED [Interacting]
     Indication: RHEUMATOID ARTHRITIS
     Dosage: SEE  IMAGE
     Route: 048
     Dates: start: 20041007, end: 20050320
  3. HYDROCHLOROTHIAZIDE [Concomitant]
  4. IMITREX [Concomitant]
  5. ZANTAC [Concomitant]
  6. OCUVIETE (OCUVITE0 [Concomitant]
  7. MULTIVITAMIN [Concomitant]
  8. VITAMIN E [Concomitant]
  9. NORVASC [Concomitant]

REACTIONS (7)
  - ABDOMINAL PAIN [None]
  - CLOSTRIDIAL INFECTION [None]
  - CONSTIPATION [None]
  - DIARRHOEA [None]
  - DRUG INTERACTION [None]
  - HAEMATOCHEZIA [None]
  - LOWER GASTROINTESTINAL HAEMORRHAGE [None]
